FAERS Safety Report 4697638-3 (Version None)
Quarter: 2005Q2

REPORT INFORMATION
  Report Type: 
  Country: None (occurrence: None)
  Receive Date: 20050620
  Receipt Date: 20040816
  Transmission Date: 20051028
  Serious: Yes (Hospitalization)
  Sender: FDA-Public Use
  Company Number: 200414088US

PATIENT
  Age: 45 Year
  Sex: Female
  Weight: 53.6 kg

DRUGS (8)
  1. LANTUS [Suspect]
     Indication: DIABETES MELLITUS INSULIN-DEPENDENT
     Dates: start: 20020101, end: 20030101
  2. LANTUS [Suspect]
     Indication: DIABETES MELLITUS INSULIN-DEPENDENT
     Dosage: 30 U QPM SC
     Route: 058
     Dates: start: 20030301
  3. LANTUS [Suspect]
     Indication: DIABETES MELLITUS INSULIN-DEPENDENT
     Dosage: 30 U QPM SC
     Route: 058
     Dates: start: 20030301
  4. HUMALOG [Concomitant]
  5. INSULIN HUMAN, INSULIN ISOPHANE, HUMAN BIOSYNTHETIC (HUMULIN) [Concomitant]
  6. LISINOPRIL [Concomitant]
  7. NEURONTIN [Concomitant]
  8. DIMETICONE, ACTIVATED (GAS-X) [Concomitant]

REACTIONS (5)
  - BLOOD GLUCOSE INCREASED [None]
  - GLYCOSYLATED HAEMOGLOBIN INCREASED [None]
  - HYPERGLYCAEMIA [None]
  - HYPOGLYCAEMIA [None]
  - WEIGHT DECREASED [None]
